FAERS Safety Report 18670217 (Version 3)
Quarter: 2021Q1

REPORT INFORMATION
  Report Type: Spontaneous
  Country: US (occurrence: US)
  Receive Date: 20201228
  Receipt Date: 20210322
  Transmission Date: 20210419
  Serious: No
  Sender: FDA-Public Use
  Company Number: NVSC2020US336055

PATIENT
  Age: 32 Year
  Sex: Male
  Weight: 79 kg

DRUGS (1)
  1. KESIMPTA [Suspect]
     Active Substance: OFATUMUMAB
     Indication: MULTIPLE SCLEROSIS
     Dosage: 20 MG (KESIMPTA SENSOREADY PEN DAY 0, 7, 14 AND 28 FOLLOWED BY MONTHLY INJECTION)
     Route: 058
     Dates: start: 20201028

REACTIONS (4)
  - Pallor [Recovering/Resolving]
  - Rash [Recovered/Resolved]
  - Rash maculo-papular [Recovering/Resolving]
  - Pruritus [Recovering/Resolving]

NARRATIVE: CASE EVENT DATE: 202010
